FAERS Safety Report 4392602-6 (Version None)
Quarter: 2004Q3

REPORT INFORMATION
  Report Type: 
  Country: None (occurrence: None)
  Receive Date: 20040702
  Receipt Date: 20040621
  Transmission Date: 20050211
  Serious: Yes (Other)
  Sender: FDA-Public Use
  Company Number: HQWYE449515JUN04

PATIENT
  Age: 48 Year
  Sex: Female

DRUGS (5)
  1. EFFEXOR XR [Suspect]
     Dosage: ORAL
     Route: 048
     Dates: start: 20040401
  2. TEGRETOL [Concomitant]
  3. TOPAMAX [Concomitant]
  4. LAMICTAL [Concomitant]
  5. SANDOMIGRAN (PIZOTIFEN MALEATE) [Concomitant]

REACTIONS (2)
  - CONDITION AGGRAVATED [None]
  - PETIT MAL EPILEPSY [None]
